FAERS Safety Report 20898839 (Version 2)
Quarter: 2022Q3

REPORT INFORMATION
  Report Type: Report from Study
  Country: CA (occurrence: CA)
  Receive Date: 20220601
  Receipt Date: 20220816
  Transmission Date: 20221027
  Serious: Yes (Other)
  Sender: FDA-Public Use
  Company Number: CA-ABBVIE-22K-028-4382409-00

PATIENT
  Sex: Female

DRUGS (3)
  1. RINVOQ [Suspect]
     Active Substance: UPADACITINIB
     Indication: Rheumatoid arthritis
     Route: 048
     Dates: start: 20210206
  2. RINVOQ [Suspect]
     Active Substance: UPADACITINIB
     Route: 048
  3. METHOTREXATE [Suspect]
     Active Substance: METHOTREXATE
     Indication: Product used for unknown indication
     Route: 065

REACTIONS (10)
  - Carpal tunnel syndrome [Unknown]
  - Acne [Recovered/Resolved]
  - Hypoaesthesia [Not Recovered/Not Resolved]
  - Pain in extremity [Unknown]
  - Osteoarthritis [Unknown]
  - Acne [Unknown]
  - Acne [Recovered/Resolved]
  - Unevaluable event [Unknown]
  - Fatigue [Recovering/Resolving]
  - Adverse drug reaction [Unknown]
